FAERS Safety Report 5317614-7 (Version None)
Quarter: 2007Q2

REPORT INFORMATION
  Report Type: 
  Country: None (occurrence: None)
  Receive Date: 20070507
  Receipt Date: 20070426
  Transmission Date: 20071010
  Serious: Yes (Other)
  Sender: FDA-Public Use
  Company Number: PHRM2007FR01367

PATIENT
  Age: 61 Year
  Sex: Female

DRUGS (1)
  1. COTAREG [Suspect]
     Dosage: 1 DF, QD
     Route: 048

REACTIONS (3)
  - AUTOIMMUNE DISORDER [None]
  - ERYTHEMA [None]
  - VASCULITIS [None]
